FAERS Safety Report 7960578-8 (Version None)
Quarter: 2011Q4

REPORT INFORMATION
  Report Type: 
  Country: None (occurrence: None)
  Receive Date: 20111206
  Receipt Date: 20111130
  Transmission Date: 20120403
  Serious: Yes (Hospitalization)
  Sender: FDA-Public Use
  Company Number: CA-B.I. PHARMACEUTICALS,INC./RIDGEFIELD-2011-CN-01882CN

PATIENT
  Sex: Male

DRUGS (11)
  1. MIRAPEX [Suspect]
     Indication: PARKINSON'S DISEASE
     Dosage: 1.5 MG
     Dates: start: 20020103, end: 20090209
  2. TRIHEXYPHEN-2 [Concomitant]
     Dosage: 1/2 TABLET 2 TIMES PER DAY AND INCREASE OF 1/2 TABLET IN 3 DAYS (MAXIMUM 1 TABLET 3X/DAY)
  3. LIPITOR [Concomitant]
     Indication: BLOOD CHOLESTEROL
     Dosage: 10 MG
  4. RIVASA [Concomitant]
     Dosage: 80 MG
  5. RATIO-EMTEC-30 [Concomitant]
     Indication: PAIN
     Dosage: 1200 MG
  6. NORVASC [Concomitant]
     Dosage: 5 MG
  7. PANTOPRAZOLE SODIUM [Concomitant]
     Dosage: 40 MG
  8. NITROLINGUAL POMPE [Concomitant]
  9. NOVO-ATENOL [Concomitant]
     Dosage: 50 MG
  10. TRIHEXYPHEN-2 [Concomitant]
     Dosage: 4 MG
  11. GEN-AMANTADINE [Concomitant]
     Dosage: 200 MG

REACTIONS (7)
  - HIP SURGERY [None]
  - MENTAL DISORDER [None]
  - PATHOLOGICAL GAMBLING [None]
  - PNEUMONIA [None]
  - ECONOMIC PROBLEM [None]
  - PARTNER STRESS [None]
  - OESOPHAGEAL OBSTRUCTION [None]
